FAERS Safety Report 4862219-5 (Version None)
Quarter: 2005Q4

REPORT INFORMATION
  Report Type: 
  Country: None (occurrence: None)
  Receive Date: 20051201
  Receipt Date: 20050812
  Transmission Date: 20060501
  Serious: No
  Sender: FDA-Public Use
  Company Number: 2005PV001170

PATIENT
  Sex: Female

DRUGS (10)
  1. BYETTA [Suspect]
     Indication: DIABETES MELLITUS NON-INSULIN-DEPENDENT
     Dosage: 5 MCG; BID; SC
     Route: 058
     Dates: start: 20050702
  2. VAGIFEM [Concomitant]
  3. LIPITOR [Concomitant]
  4. STEROID INJECTION WITH LIDOCAINE [Concomitant]
  5. METFORMIN [Concomitant]
  6. GLIPIZIDE [Concomitant]
  7. MULTIVITAMIN [Concomitant]
  8. CALCIUM GLUCONATE [Concomitant]
  9. ESTRADIOL INJ [Concomitant]
  10. MAGNESIUM [Concomitant]

REACTIONS (3)
  - FATIGUE [None]
  - MUSCLE SPASMS [None]
  - NAUSEA [None]
